FAERS Safety Report 5737482-9 (Version None)
Quarter: 2008Q2

REPORT INFORMATION
  Report Type: 
  Country: None (occurrence: None)
  Receive Date: 20080514
  Receipt Date: 20080509
  Transmission Date: 20081010
  Serious: Yes (Disabling, Other)
  Sender: FDA-Public Use
  Company Number: US-GILEAD-2008-0016174

PATIENT
  Sex: Male
  Weight: 126.21 kg

DRUGS (10)
  1. LETAIRIS [Suspect]
     Indication: PULMONARY HYPERTENSION
     Route: 048
     Dates: start: 20080411
  2. FUROSEMIDE [Concomitant]
     Route: 048
  3. LISINOPRIL [Concomitant]
     Route: 048
  4. TERAZOSIN HCL [Concomitant]
     Route: 048
  5. IPRATROPIUM/ALBUTEROL NEBULIZATION [Concomitant]
     Route: 055
  6. FORADIL [Concomitant]
     Route: 055
  7. THEOPHYLLINE [Concomitant]
     Route: 048
  8. CITALOPRAM HYDROBROMIDE [Concomitant]
     Route: 048
  9. TETRACYCLINE [Concomitant]
     Route: 048
  10. ADVIL [Concomitant]
     Route: 048

REACTIONS (3)
  - DYSPNOEA [None]
  - FLUSHING [None]
  - OEDEMA PERIPHERAL [None]
